FAERS Safety Report 7963393-4 (Version None)
Quarter: 2011Q4

REPORT INFORMATION
  Report Type: 
  Country: None (occurrence: None)
  Receive Date: 20111122
  Receipt Date: 20110727
  Transmission Date: 20120403
  Serious: No
  Sender: FDA-Public Use
  Company Number: PHHY2011US68632

PATIENT
  Sex: Male
  Weight: 87 kg

DRUGS (1)
  1. GILENYA [Suspect]
     Indication: MULTIPLE SCLEROSIS
     Dosage: 0.5 MG, EVERY DAY, ORAL
     Route: 048
     Dates: start: 20110711

REACTIONS (2)
  - FATIGUE [None]
  - JOINT SWELLING [None]
